FAERS Safety Report 8514700-5 (Version None)
Quarter: 2012Q3

REPORT INFORMATION
  Report Type: 
  Country: None (occurrence: None)
  Receive Date: 20120717
  Receipt Date: 20120709
  Transmission Date: 20120928
  Serious: Yes (Hospitalization)
  Sender: FDA-Public Use
  Company Number: US-ACTELION-A-US2012-67692

PATIENT

DRUGS (8)
  1. SILDENAFIL [Concomitant]
  2. CALCIUM CHANNEL BLOCKERS [Concomitant]
  3. VENTAVIS [Suspect]
     Indication: PULMONARY ARTERIAL HYPERTENSION
     Dosage: UNK
     Route: 055
  4. DIGOXIN [Concomitant]
  5. ASPIRIN [Concomitant]
  6. LASIX [Concomitant]
  7. COUMADIN [Concomitant]
  8. SPIRONOLACTONE [Concomitant]

REACTIONS (5)
  - OEDEMA PERIPHERAL [None]
  - EYE SWELLING [None]
  - OEDEMA [None]
  - LIP SWELLING [None]
  - DYSPNOEA [None]
